FAERS Safety Report 9529097 (Version 1)
Quarter: 2013Q3

REPORT INFORMATION
  Report Type: Not Available
  Country: US (occurrence: US)
  Receive Date: 20130916
  Receipt Date: 20130916
  Transmission Date: 20140515
  Serious: No
  Sender: FDA-Public Use
  Company Number: US-LUNDBECK-DKLU1086147

PATIENT
  Sex: Male

DRUGS (2)
  1. DILANTIN [Concomitant]
     Indication: PRODUCT USED FOR UNKNOWN INDICATION
  2. ONFI [Suspect]
     Indication: CONVULSION
     Route: 048
     Dates: start: 20120625

REACTIONS (1)
  - Drug ineffective [Unknown]
